FAERS Safety Report 18280005 (Version 16)
Quarter: 2025Q2

REPORT INFORMATION
  Report Type: Report from Study
  Country: US (occurrence: US)
  Receive Date: 20200918
  Receipt Date: 20250424
  Transmission Date: 20250717
  Serious: Yes (Death, Hospitalization, Other)
  Sender: TAKEDA
  Company Number: US-SHIRE-US202030252

PATIENT
  Age: 61 Year
  Sex: Female
  Weight: 88 kg

DRUGS (64)
  1. .ALPHA.1-PROTEINASE INHIBITOR HUMAN [Suspect]
     Active Substance: .ALPHA.1-PROTEINASE INHIBITOR HUMAN
     Indication: Alpha-1 antitrypsin deficiency
     Dosage: 6492 MILLIGRAM, 1/WEEK
     Dates: start: 20110107
  2. .ALPHA.1-PROTEINASE INHIBITOR HUMAN [Suspect]
     Active Substance: .ALPHA.1-PROTEINASE INHIBITOR HUMAN
     Indication: Chronic obstructive pulmonary disease
     Dosage: 5860 MILLIGRAM, 1/WEEK
  3. .ALPHA.1-PROTEINASE INHIBITOR HUMAN [Suspect]
     Active Substance: .ALPHA.1-PROTEINASE INHIBITOR HUMAN
     Dosage: 60 MILLIGRAM/KILOGRAM, 1/WEEK
  4. LEVAQUIN [Suspect]
     Active Substance: LEVOFLOXACIN
     Indication: Pleurisy
  5. OXYCODONE AND ACETAMINOPHEN [Concomitant]
     Active Substance: ACETAMINOPHEN\OXYCODONE HYDROCHLORIDE
  6. PREDNISONE [Concomitant]
     Active Substance: PREDNISONE
  7. LEVOTHYROXINE [Concomitant]
     Active Substance: LEVOTHYROXINE
  8. DIPHENHYDRAMINE [Concomitant]
     Active Substance: DIPHENHYDRAMINE
  9. SODIUM CHLORIDE [Concomitant]
     Active Substance: SODIUM CHLORIDE
  10. EPINEPHRINE [Concomitant]
     Active Substance: EPINEPHRINE
  11. Lmx [Concomitant]
  12. KETOCONAZOLE [Concomitant]
     Active Substance: KETOCONAZOLE
  13. TRIAMCINOLONE [Concomitant]
     Active Substance: TRIAMCINOLONE
  14. FENOFIBRATE [Concomitant]
     Active Substance: FENOFIBRATE
  15. MAGNESIUM [Concomitant]
     Active Substance: MAGNESIUM
  16. VITAMIN D3 [Concomitant]
     Active Substance: CHOLECALCIFEROL
  17. TRIMETHOPRIM [Concomitant]
     Active Substance: TRIMETHOPRIM
  18. OXYGEN [Concomitant]
     Active Substance: OXYGEN
  19. FLUCONAZOLE [Concomitant]
     Active Substance: FLUCONAZOLE
  20. VENTOLIN [Concomitant]
     Active Substance: ALBUTEROL SULFATE
  21. IBUPROFEN [Concomitant]
     Active Substance: IBUPROFEN
  22. FUROSEMIDE [Concomitant]
     Active Substance: FUROSEMIDE
  23. HYSINGLA ER [Concomitant]
     Active Substance: HYDROCODONE BITARTRATE
  24. METFORMIN [Concomitant]
     Active Substance: METFORMIN HYDROCHLORIDE
  25. GABAPENTIN [Concomitant]
     Active Substance: GABAPENTIN
  26. NASONEX [Concomitant]
     Active Substance: MOMETASONE FUROATE
  27. LEXAPRO [Concomitant]
     Active Substance: ESCITALOPRAM OXALATE
  28. XYZAL [Concomitant]
     Active Substance: LEVOCETIRIZINE DIHYDROCHLORIDE
  29. BENICAR [Concomitant]
     Active Substance: OLMESARTAN MEDOXOMIL
  30. ZOLPIDEM [Concomitant]
     Active Substance: ZOLPIDEM TARTRATE
  31. NYSTATIN [Concomitant]
     Active Substance: NYSTATIN
  32. ACETAMINOPHEN [Concomitant]
     Active Substance: ACETAMINOPHEN
  33. ESCITALOPRAM [Concomitant]
     Active Substance: ESCITALOPRAM OXALATE
  34. LOSARTAN AND HYDROCHLOROTHIAZIDE [Concomitant]
     Active Substance: HYDROCHLOROTHIAZIDE\LOSARTAN POTASSIUM
  35. ALBUTEROL SULFATE [Concomitant]
     Active Substance: ALBUTEROL SULFATE
  36. TRELEGY ELLIPTA [Concomitant]
     Active Substance: FLUTICASONE FUROATE\UMECLIDINIUM BROMIDE\VILANTEROL TRIFENATATE
  37. ALBUTEROL SULFATE [Concomitant]
     Active Substance: ALBUTEROL SULFATE
  38. CYANOCOBALAMIN [Concomitant]
     Active Substance: CYANOCOBALAMIN
  39. LEVOTHYROXINE SODIUM [Concomitant]
     Active Substance: LEVOTHYROXINE SODIUM
  40. METFORMIN HYDROCHLORIDE [Concomitant]
     Active Substance: METFORMIN HYDROCHLORIDE
  41. ZOLPIDEM TARTRATE [Concomitant]
     Active Substance: ZOLPIDEM TARTRATE
  42. ESCITALOPRAM OXALATE [Concomitant]
     Active Substance: ESCITALOPRAM OXALATE
  43. DIPHENHYDRAMINE HYDROCHLORIDE [Concomitant]
     Active Substance: DIPHENHYDRAMINE HYDROCHLORIDE
  44. PFIZER-BIONTECH COVID-19 VACCINE [Concomitant]
     Active Substance: TOZINAMERAN
  45. OMEPRAZOLE [Concomitant]
     Active Substance: OMEPRAZOLE
  46. FLUZONE [Concomitant]
     Active Substance: INFLUENZA A VIRUS A/CALIFORNIA/7/2009 X-179A (H1N1) ANTIGEN (FORMALDEHYDE INACTIVATED)\INFLUENZA A V
  47. ASPIRIN [Concomitant]
     Active Substance: ASPIRIN
  48. SPIRONOLACTONE [Concomitant]
     Active Substance: SPIRONOLACTONE
  49. KLOR-CON [Concomitant]
     Active Substance: POTASSIUM CHLORIDE
  50. ACETAZOLAMIDE [Concomitant]
     Active Substance: ACETAZOLAMIDE
  51. IMIQUIMOD [Concomitant]
     Active Substance: IMIQUIMOD
  52. LEVOCETIRIZINE DIHYDROCHLORIDE [Concomitant]
     Active Substance: LEVOCETIRIZINE DIHYDROCHLORIDE
  53. PERCOCET [Concomitant]
     Active Substance: ACETAMINOPHEN\OXYCODONE HYDROCHLORIDE
  54. FAMOTIDINE [Concomitant]
     Active Substance: FAMOTIDINE
  55. DOXEPIN HYDROCHLORIDE [Concomitant]
     Active Substance: DOXEPIN HYDROCHLORIDE
  56. LOSARTAN POTASSIUM [Concomitant]
     Active Substance: LOSARTAN POTASSIUM
  57. METOPROLOL SUCCINATE [Concomitant]
     Active Substance: METOPROLOL SUCCINATE
  58. DIPHENHYDRAMINE HYDROCHLORIDE [Concomitant]
     Active Substance: DIPHENHYDRAMINE HYDROCHLORIDE
  59. AZITHROMYCIN [Concomitant]
     Active Substance: AZITHROMYCIN
  60. BIOTIN [Concomitant]
     Active Substance: BIOTIN
  61. LASIX [Concomitant]
     Active Substance: FUROSEMIDE
  62. VITAMIN D [Concomitant]
     Active Substance: VITAMIN D NOS
  63. LIDOCAINE [Concomitant]
     Active Substance: LIDOCAINE
  64. JANUVIA [Concomitant]
     Active Substance: SITAGLIPTIN PHOSPHATE

REACTIONS (22)
  - Death [Fatal]
  - Cardiac failure congestive [Unknown]
  - Respiratory distress [Unknown]
  - Arthritis [Unknown]
  - Pneumonia [Unknown]
  - Renal failure [Recovered/Resolved]
  - Sepsis [Unknown]
  - Fall [Unknown]
  - Hypervolaemia [Unknown]
  - Dyspnoea [Recovering/Resolving]
  - Increased tendency to bruise [Unknown]
  - Pleurisy [Unknown]
  - Exostosis [Unknown]
  - Illness [Unknown]
  - Laryngitis [Unknown]
  - Feeding disorder [Unknown]
  - Contusion [Unknown]
  - Anxiety [Unknown]
  - Product dose omission issue [Unknown]
  - Product use in unapproved indication [Unknown]
  - Oedema [Unknown]
  - Diarrhoea [Unknown]

NARRATIVE: CASE EVENT DATE: 20110107
